FAERS Safety Report 8270643-6 (Version None)
Quarter: 2012Q2

REPORT INFORMATION
  Report Type: 
  Country: None (occurrence: None)
  Receive Date: 20120410
  Receipt Date: 20120402
  Transmission Date: 20120825
  Serious: Yes (Hospitalization, Other)
  Sender: FDA-Public Use
  Company Number: US-BAYER-2011-114329

PATIENT
  Age: 18 Year
  Sex: Female
  Weight: 88.889 kg

DRUGS (3)
  1. YAZ [Suspect]
     Indication: CONTRACEPTION
     Dosage: UNK
     Dates: start: 20081226, end: 20091022
  2. YAZ [Suspect]
     Indication: ACNE
  3. ONDANSETRON [Concomitant]
     Dosage: 8 MG, UNK
     Route: 048
     Dates: start: 20100503

REACTIONS (8)
  - JAUNDICE [None]
  - CHOLELITHIASIS [None]
  - BILE DUCT STONE [None]
  - MENTAL DISORDER [None]
  - INJURY [None]
  - PAIN [None]
  - BILIARY DILATATION [None]
  - ABDOMINAL PAIN [None]
